FAERS Safety Report 18312681 (Version 1)
Quarter: 2020Q3

REPORT INFORMATION
  Report Type: Spontaneous
  Country: US (occurrence: US)
  Receive Date: 20200925
  Receipt Date: 20200925
  Transmission Date: 20201103
  Serious: Yes (Life-Threatening, Other)
  Sender: FDA-Public Use
  Company Number: US-AKRON, INC.-2091156

PATIENT
  Age: 56 Year
  Sex: Female

DRUGS (1)
  1. METHADONE HYDROCHLORIDE INJECTION USP CII [Suspect]
     Active Substance: METHADONE HYDROCHLORIDE

REACTIONS (3)
  - Intentional self-injury [Unknown]
  - Drug withdrawal syndrome [Unknown]
  - Suicidal behaviour [Unknown]
